FAERS Safety Report 17567084 (Version 1)
Quarter: 2020Q1

REPORT INFORMATION
  Report Type: Spontaneous
  Country: FR (occurrence: FR)
  Receive Date: 20200320
  Receipt Date: 20200320
  Transmission Date: 20200409
  Serious: Yes (Hospitalization, Other)
  Sender: FDA-Public Use
  Company Number: FR-AUROBINDO-AUR-APL-2020-014401

PATIENT
  Age: 23 Year
  Sex: Female

DRUGS (4)
  1. LAROXYL [Suspect]
     Active Substance: AMITRIPTYLINE HYDROCHLORIDE
     Indication: PRODUCT USED FOR UNKNOWN INDICATION
     Dosage: 1000 MILLIGRAM 1 TOTAL
     Route: 048
     Dates: start: 20200106, end: 20200106
  2. PARACETAMOL [Suspect]
     Active Substance: ACETAMINOPHEN
     Indication: PRODUCT USED FOR UNKNOWN INDICATION
     Dosage: 15 GRAM 1 TOTAL
     Route: 048
     Dates: start: 20200106, end: 20200106
  3. NORDAZ [Suspect]
     Active Substance: NORDAZEPAM
     Indication: PRODUCT USED FOR UNKNOWN INDICATION
     Dosage: UNK
     Route: 048
     Dates: start: 20200106, end: 20200106
  4. SEROPLEX [Suspect]
     Active Substance: ESCITALOPRAM OXALATE
     Indication: PRODUCT USED FOR UNKNOWN INDICATION
     Dosage: UNK
     Route: 048
     Dates: start: 20200106, end: 20200106

REACTIONS (4)
  - Confusional state [Recovered/Resolved]
  - Electrocardiogram QT prolonged [Recovered/Resolved]
  - Poisoning deliberate [Recovered/Resolved]
  - Prothrombin time shortened [Recovered/Resolved]

NARRATIVE: CASE EVENT DATE: 20200106
